FAERS Safety Report 15155944 (Version 1)
Quarter: 2018Q3

REPORT INFORMATION
  Report Type: Spontaneous
  Country: DE (occurrence: DE)
  Receive Date: 20180717
  Receipt Date: 20180717
  Transmission Date: 20181010
  Serious: Yes (Death)
  Sender: FDA-Public Use
  Company Number: DE-US WORLDMEDS, LLC-STA_00019970

PATIENT
  Sex: Male
  Weight: 74 kg

DRUGS (1)
  1. APOMORPHINE HYDROCHLORIDE [Suspect]
     Active Substance: APOMORPHINE HYDROCHLORIDE
     Indication: PRODUCT USED FOR UNKNOWN INDICATION
     Dosage: 7.0 MG/H FOR 15 HOURS DAILY
     Route: 058
     Dates: start: 20080225, end: 20090210

REACTIONS (1)
  - Gastric cancer [Fatal]
